FAERS Safety Report 24006075 (Version 1)
Quarter: 2024Q2

REPORT INFORMATION
  Report Type: Spontaneous
  Country: US (occurrence: None)
  Receive Date: 20240622
  Receipt Date: 20240622
  Transmission Date: 20240716
  Serious: Yes (Hospitalization)
  Sender: FDA-Public Use
  Company Number: None

PATIENT
  Age: 86 Year
  Sex: Male
  Weight: 89.8 kg

DRUGS (1)
  1. METOPROLOL TARTRATE [Suspect]
     Active Substance: METOPROLOL TARTRATE
     Dates: start: 20240223, end: 20240301

REACTIONS (8)
  - Sinus bradycardia [None]
  - Atrial fibrillation [None]
  - Cardiac failure congestive [None]
  - Headache [None]
  - Electrocardiogram Q wave abnormal [None]
  - Blood pressure increased [None]
  - Atrioventricular block [None]
  - Therapy cessation [None]

NARRATIVE: CASE EVENT DATE: 20240320
